FAERS Safety Report 14667077 (Version 2)
Quarter: 2018Q2

REPORT INFORMATION
  Report Type: Spontaneous
  Country: US (occurrence: US)
  Receive Date: 20180322
  Receipt Date: 20180501
  Transmission Date: 20180711
  Serious: Yes (Death, Hospitalization, Other)
  Sender: FDA-Public Use
  Company Number: US-ACCORD-064534

PATIENT
  Age: 62 Year
  Sex: Male

DRUGS (1)
  1. CLOZAPINE. [Suspect]
     Active Substance: CLOZAPINE
     Indication: SCHIZOPHRENIA
     Dosage: TITRATED TO 75 MG DAILY OVER 3 WEEKS

REACTIONS (9)
  - Salivary hypersecretion [Unknown]
  - Metabolic acidosis [Unknown]
  - Orthostatic hypotension [Unknown]
  - Circulatory collapse [Fatal]
  - Abdominal pain [Unknown]
  - Cardiac failure congestive [Fatal]
  - Constipation [Unknown]
  - Myocarditis [Fatal]
  - Acute respiratory failure [Fatal]
